FAERS Safety Report 9594965 (Version 5)
Quarter: 2014Q2

REPORT INFORMATION
  Report Type: Spontaneous
  Country: US (occurrence: None)
  Receive Date: 20130808
  Receipt Date: 20140423
  Transmission Date: 20141212
  Serious: Yes (Hospitalization, Disabling, Other)
  Sender: FDA-Public Use
  Company Number: 149994

PATIENT
  Age: 73 Year
  Sex: Male
  Weight: 68 kg

DRUGS (1)
  1. LEUCOVORIN CALCIUM [Suspect]
     Indication: COLORECTAL CANCER METASTATIC
     Dosage: 400 MG/M2: 716.0MG,IV.
     Route: 042
     Dates: start: 20120407, end: 20120521

REACTIONS (14)
  - Spinal column stenosis [None]
  - Platelet count decreased [None]
  - White blood cell count decreased [None]
  - Pyrexia [None]
  - Cataract [None]
  - Cerebral infarction [None]
  - Cerebral artery stenosis [None]
  - Back pain [None]
  - Musculoskeletal pain [None]
  - Neutrophil count decreased [None]
  - Fatigue [None]
  - Memory impairment [None]
  - Posterior reversible encephalopathy syndrome [None]
  - Blood pressure increased [None]
